FAERS Safety Report 4384503-4 (Version None)
Quarter: 2004Q2

REPORT INFORMATION
  Report Type: 
  Country: None (occurrence: None)
  Receive Date: 20040610
  Receipt Date: 20040322
  Transmission Date: 20050107
  Serious: Yes (Hospitalization)
  Sender: FDA-Public Use
  Company Number: F03200400027

PATIENT
  Age: 57 Year
  Sex: Female

DRUGS (10)
  1. ELOXATIN [Suspect]
     Indication: BILE DUCT CANCER
     Dosage: 22 G OTHER - INTRAVENOUS NOS
     Route: 042
     Dates: start: 20040302, end: 20040302
  2. XELODA [Suspect]
     Indication: BILE DUCT CANCER
     Dosage: 2000 MG BID - ORAL
     Route: 048
     Dates: start: 20040302, end: 20040315
  3. LEVOTHYROXINE SODIUM [Concomitant]
  4. ATENOLOL [Concomitant]
  5. HYDROCODONE + ACETAMINOPHEN [Concomitant]
  6. URSODIOL [Concomitant]
  7. DICYCLOMINE HCL [Concomitant]
  8. POLYCARBOPHIL CALCIUM [Concomitant]
  9. MULTI-VITAMINS [Concomitant]
  10. SUMATRIPTAN [Concomitant]

REACTIONS (4)
  - ABDOMINAL PAIN [None]
  - BLOOD BILIRUBIN INCREASED [None]
  - HYPOKALAEMIA [None]
  - VOMITING [None]
